FAERS Safety Report 24257122 (Version 1)
Quarter: 2024Q3

REPORT INFORMATION
  Report Type: Spontaneous
  Country: DE (occurrence: DE)
  Receive Date: 20240828
  Receipt Date: 20240828
  Transmission Date: 20241016
  Serious: Yes (Other)
  Sender: ADVANZ PHARMA
  Company Number: DE-SANOFI-02181501

PATIENT

DRUGS (1)
  1. HYDROXYCHLOROQUINE [Suspect]
     Active Substance: HYDROXYCHLOROQUINE
     Indication: Product used for unknown indication
     Dosage: 200 MG, QD((QUENSYL FILM COATED TABLET)

REACTIONS (2)
  - Anaphylactic shock [Recovered/Resolved]
  - Contraindicated product administered [Unknown]
